FAERS Safety Report 5112739-3 (Version None)
Quarter: 2006Q3

REPORT INFORMATION
  Report Type: 
  Country: None (occurrence: None)
  Receive Date: 20060922
  Receipt Date: 20060913
  Transmission Date: 20061208
  Serious: Yes (Other)
  Sender: FDA-Public Use
  Company Number: US-JNJFOC-20060903830

PATIENT
  Sex: Male

DRUGS (1)
  1. DURAGESIC-100 [Suspect]
     Indication: SPINAL FUSION SURGERY
     Route: 065
     Dates: start: 20050101

REACTIONS (7)
  - APPLICATION SITE ERYTHEMA [None]
  - APPLICATION SITE IRRITATION [None]
  - APPLICATION SITE REACTION [None]
  - CEREBROVASCULAR ACCIDENT [None]
  - COLD SWEAT [None]
  - HOT FLUSH [None]
  - HYPERHIDROSIS [None]
